FAERS Safety Report 20503030 (Version 1)
Quarter: 2022Q1

REPORT INFORMATION
  Report Type: Spontaneous
  Country: US (occurrence: None)
  Receive Date: 20220222
  Receipt Date: 20220222
  Transmission Date: 20220424
  Serious: Yes (Hospitalization)
  Sender: FDA-Public Use
  Company Number: None

PATIENT
  Age: 80 Year
  Sex: Female

DRUGS (1)
  1. CAPECITABINE [Suspect]
     Active Substance: CAPECITABINE
     Indication: Colorectal cancer
     Dosage: OTHER FREQUENCY : BID MON-FRI;?
     Route: 048
     Dates: start: 20220107

REACTIONS (4)
  - Pyrexia [None]
  - Urinary tract infection [None]
  - Sinusitis [None]
  - White blood cell count decreased [None]

NARRATIVE: CASE EVENT DATE: 20220203
